FAERS Safety Report 5092522-8 (Version None)
Quarter: 2006Q3

REPORT INFORMATION
  Report Type: 
  Country: None (occurrence: None)
  Receive Date: 20060828
  Receipt Date: 20060818
  Transmission Date: 20061208
  Serious: Yes (Hospitalization, Other)
  Sender: FDA-Public Use
  Company Number: 2006100737

PATIENT
  Sex: Male
  Weight: 90.7194 kg

DRUGS (11)
  1. LIPITOR [Suspect]
     Indication: BLOOD CHOLESTEROL INCREASED
     Dosage: UNK (20 MG, 1 IN 2 D);
     Dates: start: 20050301
  2. LIPITOR [Suspect]
     Indication: LOW DENSITY LIPOPROTEIN INCREASED
     Dosage: UNK (20 MG, 1 IN 2 D);
     Dates: start: 20050301
  3. NORVASC [Concomitant]
  4. LISINOPRIL [Concomitant]
  5. PLAVIX [Concomitant]
  6. ISOSORBIDE DINITRATE [Concomitant]
  7. COREG [Concomitant]
  8. GLYBURIDE [Concomitant]
  9. HYDRALAZINE [Concomitant]
  10. WARFARIN SODIUM [Concomitant]
  11. METFORMIN [Concomitant]

REACTIONS (5)
  - ARTERIAL DISORDER [None]
  - BLOOD CHOLESTEROL INCREASED [None]
  - CATHETERISATION CARDIAC [None]
  - DIABETIC NEUROPATHY [None]
  - PAIN IN EXTREMITY [None]
